APPROVED DRUG PRODUCT: LENALIDOMIDE
Active Ingredient: LENALIDOMIDE
Strength: 20MG
Dosage Form/Route: CAPSULE;ORAL
Application: A213165 | Product #004 | TE Code: AB
Applicant: CIPLA LTD
Approved: Feb 2, 2026 | RLD: No | RS: No | Type: RX